FAERS Safety Report 5780448-3 (Version None)
Quarter: 2008Q2

REPORT INFORMATION
  Report Type: 
  Country: None (occurrence: None)
  Receive Date: 20080620
  Receipt Date: 20080606
  Transmission Date: 20081010
  Serious: Yes (Hospitalization)
  Sender: FDA-Public Use
  Company Number: BE-AMGEN-UK282567

PATIENT
  Sex: Female

DRUGS (4)
  1. PANITUMUMAB [Suspect]
     Indication: SQUAMOUS CELL CARCINOMA
     Route: 042
     Dates: start: 20080522
  2. FLUOROURACIL [Suspect]
     Dates: start: 20080501
  3. CISPLATIN [Concomitant]
     Dates: start: 20080501
  4. DOCETAXEL [Concomitant]
     Dates: start: 20080501

REACTIONS (2)
  - MYOCARDIAL ISCHAEMIA [None]
  - SYNCOPE [None]
